FAERS Safety Report 14508287 (Version 2)
Quarter: 2018Q1

REPORT INFORMATION
  Report Type: Report from Study
  Country: None (occurrence: GB)
  Receive Date: 20180209
  Receipt Date: 20180216
  Transmission Date: 20180509
  Serious: Yes (Death, Other)
  Sender: FDA-Public Use
  Company Number: GB-ABBVIE-18K-167-2250489-00

PATIENT
  Age: 74 Year
  Sex: Female

DRUGS (1)
  1. HUMIRA [Suspect]
     Active Substance: ADALIMUMAB
     Indication: RHEUMATOID ARTHRITIS
     Route: 058
     Dates: start: 20020918

REACTIONS (2)
  - Malignant neoplasm of unknown primary site [Fatal]
  - Ascites [Unknown]

NARRATIVE: CASE EVENT DATE: 2014
